FAERS Safety Report 10462688 (Version 3)
Quarter: 2015Q1

REPORT INFORMATION
  Report Type: Spontaneous
  Country: IT (occurrence: IT)
  Receive Date: 20140918
  Receipt Date: 20150115
  Transmission Date: 20150720
  Serious: Yes (Life-Threatening, Hospitalization)
  Sender: FDA-Public Use
  Company Number: IT-PFIZER INC-2014256613

PATIENT
  Age: 53 Year
  Sex: Male

DRUGS (7)
  1. LYRICA [Suspect]
     Active Substance: PREGABALIN
     Dosage: 200 MG, TOTAL
     Route: 048
     Dates: start: 20140831, end: 20140831
  2. CIPRALEX [Concomitant]
     Active Substance: ESCITALOPRAM OXALATE
     Dosage: UNK
     Route: 048
     Dates: start: 2014
  3. REMERON [Concomitant]
     Active Substance: MIRTAZAPINE
     Dosage: 2 DF, DAILY
     Route: 048
     Dates: start: 2014
  4. KADIUR [Concomitant]
     Dosage: 55 MG, DAILY
     Route: 048
  5. CARDIOASPIRIN [Concomitant]
     Active Substance: ASPIRIN
     Dosage: 100 MG, DAILY
     Route: 048
  6. DELTACORTENE [Concomitant]
     Active Substance: PREDNISONE
     Dosage: 25 MG, UNK
     Route: 048
  7. OXYCONTIN [Suspect]
     Active Substance: OXYCODONE HYDROCHLORIDE
     Dosage: 280 MG, TOTAL
     Route: 048
     Dates: start: 20140831, end: 20140831

REACTIONS (3)
  - Drug abuse [Recovering/Resolving]
  - Dyskinesia [Recovering/Resolving]
  - Sopor [Recovering/Resolving]

NARRATIVE: CASE EVENT DATE: 20140831
